FAERS Safety Report 17456724 (Version 1)
Quarter: 2020Q1

REPORT INFORMATION
  Report Type: Report from Study
  Country: JP (occurrence: JP)
  Receive Date: 20200225
  Receipt Date: 20200225
  Transmission Date: 20200409
  Serious: No
  Sender: FDA-Public Use
  Company Number: JP-ACTELION-A-CH2020-202146

PATIENT
  Sex: Male
  Weight: 5.4 kg

DRUGS (12)
  1. ASPIRIN. [Concomitant]
     Active Substance: ASPIRIN
     Indication: THROMBOSIS PROPHYLAXIS
     Route: 048
     Dates: end: 20180419
  2. BRECRUS [Concomitant]
     Indication: WOUND TREATMENT
     Route: 048
     Dates: end: 20180419
  3. REVATIO [Suspect]
     Active Substance: SILDENAFIL CITRATE
     Indication: PULMONARY ARTERIAL HYPERTENSION
     Dosage: 3 MG, TID
     Route: 048
     Dates: start: 20180131, end: 20180222
  4. FUROSEMIDE. [Concomitant]
     Active Substance: FUROSEMIDE
     Indication: CARDIAC FAILURE CONGESTIVE
     Route: 048
  5. OPSUMIT [Suspect]
     Active Substance: MACITENTAN
     Indication: PULMONARY ARTERIAL HYPERTENSION
     Dosage: 0.15 MG, BID
     Route: 048
     Dates: start: 20180213
  6. ALDACTONE A [Concomitant]
     Active Substance: SPIRONOLACTONE
     Indication: CARDIAC FAILURE CONGESTIVE
     Route: 048
  7. OXYGEN. [Concomitant]
     Active Substance: OXYGEN
     Route: 055
  8. NITRIC OXIDE. [Concomitant]
     Active Substance: NITRIC OXIDE
     Route: 055
  9. OPSUMIT [Suspect]
     Active Substance: MACITENTAN
     Dosage: 0.3 MG, BID
     Route: 048
     Dates: start: 20180216
  10. OPSUMIT [Suspect]
     Active Substance: MACITENTAN
     Dosage: 0.35 MG, BID
     Route: 048
     Dates: start: 20180402
  11. ALTAT [Concomitant]
     Active Substance: ROXATIDINE ACETATE HYDROCHLORIDE
     Indication: PROPHYLAXIS AGAINST GASTROINTESTINAL ULCER
     Route: 048
     Dates: end: 20180419
  12. SAMSCA [Concomitant]
     Active Substance: TOLVAPTAN
     Indication: CARDIAC FAILURE CONGESTIVE
     Route: 048
     Dates: end: 20180212

REACTIONS (3)
  - Hepatic function abnormal [Recovered/Resolved]
  - Aspartate aminotransferase increased [Recovered/Resolved]
  - Alanine aminotransferase increased [Recovered/Resolved]
